FAERS Safety Report 8992164 (Version 1)
Quarter: 2012Q4

REPORT INFORMATION
  Report Type: Report from Study
  Country: CA (occurrence: CA)
  Receive Date: 20121231
  Receipt Date: 20121231
  Transmission Date: 20130627
  Serious: Yes (Other)
  Sender: FDA-Public Use
  Company Number: CA-ROCHE-1173571

PATIENT
  Sex: Male

DRUGS (1)
  1. OMALIZUMAB [Suspect]
     Indication: ASTHMA
     Dosage: Most recent dose on 09/Jul/2009
     Route: 058
     Dates: start: 20051024

REACTIONS (35)
  - Fracture [Unknown]
  - Renal pain [Unknown]
  - Arthralgia [Unknown]
  - Lung infection [Unknown]
  - Hypersensitivity [Unknown]
  - Increased bronchial secretion [Unknown]
  - Lung disorder [Unknown]
  - Chest discomfort [Unknown]
  - Productive cough [Unknown]
  - Wheezing [Unknown]
  - Nasopharyngitis [Unknown]
  - Dyspnoea [Unknown]
  - Pain [Unknown]
  - Throat irritation [Unknown]
  - Alopecia [Unknown]
  - Adrenal disorder [Unknown]
  - Thyroid disorder [Unknown]
  - Tinnitus [Unknown]
  - Hypoacusis [Unknown]
  - Agitation [Unknown]
  - Malaise [Unknown]
  - Hyperhidrosis [Unknown]
  - Eye pruritus [Unknown]
  - Rhinorrhoea [Unknown]
  - Respiratory tract infection [Unknown]
  - Rales [Unknown]
  - General physical health deterioration [Unknown]
  - Hypoventilation [Unknown]
  - Myalgia [Unknown]
  - Nausea [Unknown]
  - Fatigue [Unknown]
  - Pyrexia [Unknown]
  - Headache [Unknown]
  - Cough [Unknown]
  - Hyperhidrosis [Unknown]
